FAERS Safety Report 6040491-6 (Version None)
Quarter: 2009Q1

REPORT INFORMATION
  Report Type: 
  Country: None (occurrence: None)
  Receive Date: 20090116
  Receipt Date: 20080321
  Transmission Date: 20090719
  Serious: No
  Sender: FDA-Public Use
  Company Number: US-BRISTOL-MYERS SQUIBB COMPANY-14122956

PATIENT
  Age: 65 Year
  Sex: Female
  Weight: 61 kg

DRUGS (3)
  1. ABILIFY [Suspect]
     Indication: DEPRESSION
     Dates: start: 20080320, end: 20080321
  2. CYMBALTA [Concomitant]
  3. LITHIUM [Concomitant]

REACTIONS (4)
  - ABDOMINAL PAIN [None]
  - DIZZINESS [None]
  - HEADACHE [None]
  - INSOMNIA [None]
